FAERS Safety Report 5275243-8 (Version None)
Quarter: 2007Q1

REPORT INFORMATION
  Report Type: 
  Country: None (occurrence: None)
  Receive Date: 20070326
  Receipt Date: 20070320
  Transmission Date: 20070707
  Serious: Yes (Hospitalization, Other)
  Sender: FDA-Public Use
  Company Number: US-BAYER-200710343BWH

PATIENT
  Sex: Male

DRUGS (1)
  1. AVELOX [Suspect]
     Indication: PNEUMONIA
     Route: 042

REACTIONS (7)
  - ANAPHYLACTIC SHOCK [None]
  - ERYTHEMA [None]
  - HYPOVENTILATION [None]
  - LIVER DISORDER [None]
  - RASH PRURITIC [None]
  - RENAL DISORDER [None]
  - RESTLESSNESS [None]
